FAERS Safety Report 5657904-1 (Version None)
Quarter: 2008Q1

REPORT INFORMATION
  Report Type: 
  Country: None (occurrence: None)
  Receive Date: 20080310
  Receipt Date: 20080229
  Transmission Date: 20080703
  Serious: Yes (Hospitalization, Disabling)
  Sender: FDA-Public Use
  Company Number: PHEH2008US02274

PATIENT
  Age: 37 Year
  Sex: Female
  Weight: 74.829 kg

DRUGS (1)
  1. VIVELLE-DOT [Suspect]
     Indication: ARTIFICIAL MENOPAUSE
     Dosage: 0.1 MG, BIW
     Route: 062
     Dates: start: 20050228, end: 20080201

REACTIONS (3)
  - ADRENAL INSUFFICIENCY [None]
  - PULMONARY EMBOLISM [None]
  - THROMBOPHLEBITIS [None]
